FAERS Safety Report 13438000 (Version 1)
Quarter: 2017Q2

REPORT INFORMATION
  Report Type: Spontaneous
  Country: US (occurrence: US)
  Receive Date: 20170412
  Receipt Date: 20170412
  Transmission Date: 20170830
  Serious: No
  Sender: FDA-Public Use
  Company Number: US-SA-2016SA089511

PATIENT
  Age: 73 Year
  Sex: Female

DRUGS (5)
  1. ALLEGRA [Suspect]
     Active Substance: FEXOFENADINE HYDROCHLORIDE
     Indication: EYE PRURITUS
     Dosage: TAKEN FROM: AROUND 15 MARCH?TAKEN TO: WEEK BEFORE LAST
     Route: 048
  2. ALLEGRA [Suspect]
     Active Substance: FEXOFENADINE HYDROCHLORIDE
     Indication: RHINORRHOEA
     Dosage: TAKEN FROM: AROUND 15 MARCH?TAKEN TO: WEEK BEFORE LAST
     Route: 048
  3. ALLEGRA [Suspect]
     Active Substance: FEXOFENADINE HYDROCHLORIDE
     Indication: SNEEZING
     Dosage: TAKEN FROM: AROUND 15 MARCH?TAKEN TO: WEEK BEFORE LAST
     Route: 048
  4. ALLEGRA [Suspect]
     Active Substance: FEXOFENADINE HYDROCHLORIDE
     Indication: THROAT IRRITATION
     Dosage: TAKEN FROM: AROUND 15 MARCH?TAKEN TO: WEEK BEFORE LAST
     Route: 048
  5. ALLEGRA [Suspect]
     Active Substance: FEXOFENADINE HYDROCHLORIDE
     Indication: EAR PRURITUS
     Dosage: TAKEN FROM: AROUND 15 MARCH?TAKEN TO: WEEK BEFORE LAST
     Route: 048

REACTIONS (1)
  - Drug ineffective [Unknown]
